FAERS Safety Report 14891707 (Version 2)
Quarter: 2018Q2

REPORT INFORMATION
  Report Type: Spontaneous
  Country: DE (occurrence: DE)
  Receive Date: 20180514
  Receipt Date: 20180611
  Transmission Date: 20180711
  Serious: Yes (Life-Threatening, Hospitalization, Other)
  Sender: FDA-Public Use
  Company Number: DE-B.I. PHARMACEUTICALS,INC./RIDGEFIELD-2018-BI-025709

PATIENT
  Age: 85 Year
  Sex: Male

DRUGS (2)
  1. ALDACTONE [Concomitant]
     Active Substance: SPIRONOLACTONE
     Indication: PRODUCT USED FOR UNKNOWN INDICATION
     Route: 065
  2. PRADAXA [Suspect]
     Active Substance: DABIGATRAN ETEXILATE MESYLATE
     Indication: ATRIAL FIBRILLATION
     Route: 065

REACTIONS (9)
  - Metabolic acidosis [Recovering/Resolving]
  - Haemorrhage [Unknown]
  - Dehydration [Unknown]
  - Faeces discoloured [Unknown]
  - Dyspnoea exertional [Unknown]
  - Acute kidney injury [Recovering/Resolving]
  - Haemorrhagic anaemia [Unknown]
  - Diverticulitis intestinal haemorrhagic [Unknown]
  - Melaena [Unknown]
